FAERS Safety Report 19887897 (Version 2)
Quarter: 2022Q1

REPORT INFORMATION
  Report Type: Spontaneous
  Country: CA (occurrence: CA)
  Receive Date: 20210928
  Receipt Date: 20220124
  Transmission Date: 20220424
  Serious: Yes (Hospitalization, Other)
  Sender: FDA-Public Use
  Company Number: CA-SA-SAC20210921000776

PATIENT
  Age: 13 Year
  Sex: Female

DRUGS (1)
  1. INSULIN GLARGINE [Suspect]
     Active Substance: INSULIN GLARGINE
     Indication: Diabetes mellitus
     Dosage: UNK
     Route: 065

REACTIONS (9)
  - Abdominal pain upper [Unknown]
  - Dizziness [Unknown]
  - Feeling hot [Unknown]
  - Nausea [Unknown]
  - Pollakiuria [Unknown]
  - Syncope [Unknown]
  - Gastrointestinal disorder [Unknown]
  - Blood glucose increased [Recovered/Resolved]
  - Drug ineffective [Unknown]
